FAERS Safety Report 14268288 (Version 1)
Quarter: 2017Q4

REPORT INFORMATION
  Report Type: Spontaneous
  Country: US (occurrence: US)
  Receive Date: 20171211
  Receipt Date: 20171211
  Transmission Date: 20180321
  Serious: No
  Sender: FDA-Public Use
  Company Number: None

PATIENT
  Age: 61 Year
  Sex: Female
  Weight: 76.5 kg

DRUGS (8)
  1. COLACE [Concomitant]
     Active Substance: DOCUSATE SODIUM
  2. MULTIVITAMIN [Concomitant]
     Active Substance: VITAMINS
  3. HAIR/SKIN/NAIL VITAMIN [Concomitant]
  4. METAPROLOL TARTRATE 25MG [Suspect]
     Active Substance: METOPROLOL TARTRATE
     Indication: HYPERTENSION
     Dates: start: 20170821, end: 20171211
  5. METAPROLOL TARTRATE 25MG [Suspect]
     Active Substance: METOPROLOL TARTRATE
     Indication: DIVERTICULITIS
     Dates: start: 20170821, end: 20171211
  6. OMEPROZOLE [Concomitant]
     Active Substance: OMEPRAZOLE
  7. PROBIOTIC [Concomitant]
     Active Substance: PROBIOTICS NOS
  8. METAMUCIL [Concomitant]
     Active Substance: PLANTAGO SEED

REACTIONS (1)
  - Alopecia [None]

NARRATIVE: CASE EVENT DATE: 20171211
